FAERS Safety Report 25478192 (Version 4)
Quarter: 2025Q3

REPORT INFORMATION
  Report Type: Spontaneous
  Country: JP (occurrence: JP)
  Receive Date: 20250625
  Receipt Date: 20250723
  Transmission Date: 20251020
  Serious: Yes (Hospitalization)
  Sender: AMGEN
  Company Number: JP-AMGEN-JPNSP2025119840

PATIENT

DRUGS (1)
  1. OTEZLA [Suspect]
     Active Substance: APREMILAST
     Indication: Pustular psoriasis
     Dosage: 30 MILLIGRAM, BID
     Route: 048
     Dates: end: 20250620

REACTIONS (2)
  - Cellulitis [Recovered/Resolved]
  - Psoriasis [Recovered/Resolved]
